FAERS Safety Report 9061915 (Version 1)
Quarter: 2013Q1

REPORT INFORMATION
  Report Type: Spontaneous
  Country: FR (occurrence: FR)
  Receive Date: 20130204
  Receipt Date: 20130204
  Transmission Date: 20140127
  Serious: Yes (Hospitalization, Other)
  Sender: FDA-Public Use
  Company Number: FR-ELI_LILLY_AND_COMPANY-FR201301010383

PATIENT
  Age: 51 None
  Sex: Female

DRUGS (6)
  1. CYMBALTA [Suspect]
     Indication: SUICIDE ATTEMPT
     Dosage: 14 DF, SINGLE
     Route: 048
     Dates: start: 20121114, end: 20121114
  2. PARACETAMOL [Concomitant]
     Indication: SUICIDE ATTEMPT
     Dosage: 20 G, SINGLE
     Dates: start: 20121114, end: 20121114
  3. SEGLOR [Concomitant]
     Indication: SUICIDE ATTEMPT
     Dosage: 20 DF, SINGLE
     Dates: start: 20121114, end: 20121114
  4. ZOPICLONE [Concomitant]
     Indication: SUICIDE ATTEMPT
     Dosage: 105 MG, SINGLE
     Dates: start: 20121114, end: 20121114
  5. CALCIUM SANDOZ [Concomitant]
     Indication: SUICIDE ATTEMPT
     Dosage: 60 DF, SINGLE
     Dates: start: 20121114, end: 20121114
  6. HYDROCORTISONE [Concomitant]
     Indication: SUICIDE ATTEMPT
     Dosage: 250 MG, SINGLE
     Dates: start: 20121114, end: 20121114

REACTIONS (8)
  - Suicide attempt [Not Recovered/Not Resolved]
  - Pneumonia aspiration [Not Recovered/Not Resolved]
  - Gamma-glutamyltransferase increased [Not Recovered/Not Resolved]
  - Transaminases increased [Not Recovered/Not Resolved]
  - Somnolence [Not Recovered/Not Resolved]
  - Sinus tachycardia [Not Recovered/Not Resolved]
  - Mydriasis [Not Recovered/Not Resolved]
  - Intentional overdose [Not Recovered/Not Resolved]
